FAERS Safety Report 4939651-4 (Version None)
Quarter: 2006Q1

REPORT INFORMATION
  Report Type: 
  Country: None (occurrence: None)
  Receive Date: 20060310
  Receipt Date: 20051006
  Transmission Date: 20060701
  Serious: Yes (Hospitalization, Disabling, Other)
  Sender: FDA-Public Use
  Company Number: US-MERCK-0511USA04189

PATIENT
  Age: 62 Year
  Sex: Female
  Weight: 80 kg

DRUGS (1)
  1. VIOXX [Suspect]
     Indication: ARTHRITIS
     Route: 048
     Dates: start: 20001127, end: 20040101

REACTIONS (10)
  - ANGINA PECTORIS [None]
  - ARTHRALGIA [None]
  - BACK PAIN [None]
  - CEREBROVASCULAR ACCIDENT [None]
  - CONTUSION [None]
  - DIABETES MELLITUS [None]
  - GASTROINTESTINAL HAEMORRHAGE [None]
  - HYPOAESTHESIA [None]
  - NERVOUS SYSTEM DISORDER [None]
  - NIGHT SWEATS [None]
